FAERS Safety Report 5715565-7 (Version None)
Quarter: 2008Q2

REPORT INFORMATION
  Report Type: 
  Country: None (occurrence: None)
  Receive Date: 20080424
  Receipt Date: 20080421
  Transmission Date: 20081010
  Serious: Yes (Other)
  Sender: FDA-Public Use
  Company Number: ES-SP-2008-01134

PATIENT
  Age: 66 Year
  Sex: Male

DRUGS (1)
  1. BCG  THERAPEUTICS [Suspect]
     Indication: BLADDER CANCER
     Route: 043

REACTIONS (4)
  - ADRENAL GLAND TUBERCULOSIS [None]
  - BOVINE TUBERCULOSIS [None]
  - GRANULOMA [None]
  - TRANSAMINASES INCREASED [None]
